FAERS Safety Report 13661489 (Version 1)
Quarter: 2017Q2

REPORT INFORMATION
  Report Type: Spontaneous
  Country: US (occurrence: US)
  Receive Date: 20170616
  Receipt Date: 20170616
  Transmission Date: 20170830
  Serious: No
  Sender: FDA-Public Use
  Company Number: US-US WORLDMEDS, LLC-USW201609-000627

PATIENT
  Sex: Male

DRUGS (20)
  1. STALEVO [Concomitant]
     Active Substance: CARBIDOPA\ENTACAPONE\LEVODOPA
  2. GLUCOSAMINE [Concomitant]
     Active Substance: GLUCOSAMINE
  3. MSM [Concomitant]
     Active Substance: DIMETHYL SULFONE
     Indication: ARTHROPATHY
  4. MOREASE [Concomitant]
  5. AZILECT [Concomitant]
     Active Substance: RASAGILINE MESYLATE
  6. CHONDROITIN [Concomitant]
     Active Substance: CHONDROITIN
  7. APOKYN [Suspect]
     Active Substance: APOMORPHINE HYDROCHLORIDE
     Indication: DYSKINESIA
     Dates: start: 20160711, end: 20160721
  8. APOKYN [Suspect]
     Active Substance: APOMORPHINE HYDROCHLORIDE
     Dates: start: 20160722, end: 20160821
  9. PRAVASTATIN. [Concomitant]
     Active Substance: PRAVASTATIN
  10. MELOXICAM. [Concomitant]
     Active Substance: MELOXICAM
  11. MSM [Concomitant]
     Active Substance: DIMETHYL SULFONE
     Indication: PAIN
  12. ENALAPRIL [Concomitant]
     Active Substance: ENALAPRIL
  13. ASPIRIN. [Concomitant]
     Active Substance: ASPIRIN
  14. MECLIZINE [Concomitant]
     Active Substance: MECLIZINE HYDROCHLORIDE
  15. APOKYN [Suspect]
     Active Substance: APOMORPHINE HYDROCHLORIDE
     Dates: end: 20160826
  16. AMANTADINE. [Concomitant]
     Active Substance: AMANTADINE HYDROCHLORIDE
  17. NIFEDIPINE. [Concomitant]
     Active Substance: NIFEDIPINE
  18. CIRRUS [Concomitant]
     Active Substance: CETIRIZINE HYDROCHLORIDE\PSEUDOEPHEDRINE HYDROCHLORIDE
  19. MIRAPEX [Concomitant]
     Active Substance: PRAMIPEXOLE DIHYDROCHLORIDE
  20. MSM [Concomitant]
     Active Substance: DIMETHYL SULFONE
     Indication: SWELLING

REACTIONS (5)
  - Hypoaesthesia [Recovered/Resolved]
  - Nausea [Not Recovered/Not Resolved]
  - Tremor [Not Recovered/Not Resolved]
  - Akinesia [Recovered/Resolved]
  - Drug effect decreased [Unknown]

NARRATIVE: CASE EVENT DATE: 20160711
